FAERS Safety Report 15372847 (Version 3)
Quarter: 2019Q3

REPORT INFORMATION
  Report Type: Spontaneous
  Country: US (occurrence: US)
  Receive Date: 20180912
  Receipt Date: 20190803
  Transmission Date: 20191004
  Serious: No
  Sender: FDA-Public Use
  Company Number: US-CELGENEUS-USA-20180903001

PATIENT
  Sex: Male
  Weight: 64.47 kg

DRUGS (3)
  1. REVLIMID [Suspect]
     Active Substance: LENALIDOMIDE
     Dosage: 10 MILLIGRAM
     Route: 048
     Dates: start: 20190110
  2. REVLIMID [Suspect]
     Active Substance: LENALIDOMIDE
     Indication: IRON DEFICIENCY ANAEMIA
     Dosage: 25 MILLIGRAM
     Route: 048
     Dates: start: 201806
  3. REVLIMID [Suspect]
     Active Substance: LENALIDOMIDE
     Indication: PLASMA CELL MYELOMA
     Dosage: 10 MILLIGRAM
     Route: 048
     Dates: start: 201811

REACTIONS (3)
  - Hiccups [Unknown]
  - Abdominal distension [Not Recovered/Not Resolved]
  - Flatulence [Not Recovered/Not Resolved]

NARRATIVE: CASE EVENT DATE: 2018
